FAERS Safety Report 18747909 (Version 5)
Quarter: 2021Q2

REPORT INFORMATION
  Report Type: Spontaneous
  Country: US (occurrence: US)
  Receive Date: 20210115
  Receipt Date: 20210409
  Transmission Date: 20210717
  Serious: Yes (Other)
  Sender: FDA-Public Use
  Company Number: US-AUROBINDO-AUR-APL-2020-032063

PATIENT
  Age: 63 Year
  Sex: Female
  Weight: 61.2 kg

DRUGS (1)
  1. CIPROFLOXACIN TABLETS USP 250 MG [Suspect]
     Active Substance: CIPROFLOXACIN
     Indication: URINARY TRACT INFECTION
     Dosage: 1 DOSAGE FORM, ONCE A DAY
     Route: 048
     Dates: start: 20181113, end: 20181115

REACTIONS (26)
  - Skin burning sensation [Recovering/Resolving]
  - Headache [Recovering/Resolving]
  - Eye swelling [Recovering/Resolving]
  - Visual impairment [Recovering/Resolving]
  - Nasal disorder [Recovering/Resolving]
  - Dry eye [Recovering/Resolving]
  - Swelling face [Recovering/Resolving]
  - Nerve injury [Recovering/Resolving]
  - Stevens-Johnson syndrome [Recovering/Resolving]
  - Arthralgia [Recovering/Resolving]
  - Dry skin [Recovering/Resolving]
  - Autoimmune disorder [Recovering/Resolving]
  - Skin swelling [Recovering/Resolving]
  - Dry mouth [Recovering/Resolving]
  - Flushing [Recovering/Resolving]
  - Insomnia [Recovering/Resolving]
  - Hair texture abnormal [Recovering/Resolving]
  - Impaired quality of life [Recovering/Resolving]
  - Neuropathy peripheral [Recovering/Resolving]
  - Paraesthesia [Recovering/Resolving]
  - Condition aggravated [Recovering/Resolving]
  - Nervousness [Recovering/Resolving]
  - Burning sensation [Recovering/Resolving]
  - Head discomfort [Recovering/Resolving]
  - Constipation [Recovering/Resolving]
  - Nervous system disorder [Recovering/Resolving]

NARRATIVE: CASE EVENT DATE: 20181115
